FAERS Safety Report 5079171-2 (Version None)
Quarter: 2006Q3

REPORT INFORMATION
  Report Type: 
  Country: None (occurrence: None)
  Receive Date: 20060814
  Receipt Date: 20060731
  Transmission Date: 20061208
  Serious: Yes (Death)
  Sender: FDA-Public Use
  Company Number: JP-JPN-A200602896

PATIENT
  Age: 71 Year
  Sex: Male

DRUGS (7)
  1. PAXIL [Suspect]
     Indication: DEPRESSION
     Dosage: 10MG PER DAY
     Route: 048
     Dates: start: 20060621, end: 20060710
  2. SULPIRIDE [Concomitant]
     Indication: GASTRIC DISORDER
     Dosage: 150MG PER DAY
     Route: 048
     Dates: start: 20060621, end: 20060703
  3. MYSLEE [Concomitant]
     Indication: INSOMNIA
     Dosage: 10MG PER DAY
     Route: 048
     Dates: start: 20060621, end: 20060703
  4. DEPAS [Concomitant]
     Indication: DEPRESSION
     Route: 048
  5. GASMOTIN [Concomitant]
     Indication: GASTRIC DISORDER
     Dosage: 15MG PER DAY
     Route: 048
     Dates: start: 20060705, end: 20060710
  6. RIKKUNSHI-TO [Concomitant]
     Indication: GASTRIC DISORDER
     Dosage: 7.5G PER DAY
     Route: 048
     Dates: start: 20060705, end: 20060710
  7. DOGMATYL [Concomitant]
     Indication: DEPRESSION

REACTIONS (5)
  - AFFECTIVE DISORDER [None]
  - AMNESIA [None]
  - COMPLETED SUICIDE [None]
  - INJURY ASPHYXIATION [None]
  - INSOMNIA [None]
